FAERS Safety Report 5981088-3 (Version None)
Quarter: 2008Q4

REPORT INFORMATION
  Report Type: 
  Country: None (occurrence: None)
  Receive Date: 20081202
  Receipt Date: 20081202
  Transmission Date: 20090506
  Serious: Yes (Hospitalization)
  Sender: FDA-Public Use
  Company Number: None

PATIENT
  Age: 57 Year
  Sex: Female
  Weight: 67.1 kg

DRUGS (11)
  1. LAPATINIB [Suspect]
     Indication: COLON CANCER
     Dosage: 5 X 250 MG TABLETS
     Dates: start: 20081106, end: 20081124
  2. CAPECITABINE [Suspect]
     Dosage: 1750MG 2X DAILY 14DAYS
     Dates: start: 20081106, end: 20081120
  3. ACETAMINOPHEN [Concomitant]
  4. HYDROCORTISONE [Concomitant]
  5. ALPRAZOLAM [Concomitant]
  6. LOPERAMIDE HCL [Concomitant]
  7. CALCIUM ELEMENTAL [Concomitant]
  8. MAGNESIUM ELEMENTAL [Concomitant]
  9. VITAMIN B COMPLEX CAP [Concomitant]
  10. LEVOTHYROXINE SODIUM [Concomitant]
  11. PANTOPRAZOLE SODIUM [Concomitant]

REACTIONS (8)
  - ABDOMINAL PAIN LOWER [None]
  - DEHYDRATION [None]
  - MUCOSAL INFLAMMATION [None]
  - NAUSEA [None]
  - ORAL CANDIDIASIS [None]
  - ORAL PAIN [None]
  - OROPHARYNGEAL PAIN [None]
  - VOMITING [None]
